FAERS Safety Report 7751183-7 (Version None)
Quarter: 2011Q3

REPORT INFORMATION
  Report Type: 
  Country: None (occurrence: None)
  Receive Date: 20110914
  Receipt Date: 20070725
  Transmission Date: 20111222
  Serious: Yes (Death)
  Sender: FDA-Public Use
  Company Number: PHHY2007NL03768

PATIENT
  Sex: Male

DRUGS (2)
  1. SANDOSTATIN LAR [Suspect]
     Indication: FLUSHING
     Dosage: 30 MG, EVERY 3 WEEKS
     Route: 065
     Dates: start: 20070412
  2. SANDOSTATIN [Suspect]
     Dosage: UNK UKN, UNK
     Route: 065

REACTIONS (2)
  - DEATH [None]
  - WRONG TECHNIQUE IN DRUG USAGE PROCESS [None]
